FAERS Safety Report 4784021-5 (Version None)
Quarter: 2005Q3

REPORT INFORMATION
  Report Type: 
  Country: None (occurrence: None)
  Receive Date: 20050927
  Receipt Date: 20050607
  Transmission Date: 20060218
  Serious: No
  Sender: FDA-Public Use
  Company Number: USA050289773

PATIENT
  Age: 13 Year
  Sex: Female
  Weight: 34 kg

DRUGS (20)
  1. ZYPREXA [Suspect]
     Dosage: 20 MG/1 DAY
     Dates: start: 20030501, end: 20041101
  2. STRATTERA [Suspect]
     Indication: ATTENTION DEFICIT/HYPERACTIVITY DISORDER
     Dosage: 50 MG
     Dates: start: 20040601, end: 20041101
  3. ZOLOFT [Concomitant]
  4. PAXIL [Concomitant]
  5. HALDOL [Concomitant]
  6. ATIVAN [Concomitant]
  7. LITHIUM [Concomitant]
  8. SEROQUEL [Concomitant]
  9. CLONIDINE [Concomitant]
  10. RISPERDAL [Concomitant]
  11. THORAZINE [Concomitant]
  12. SINGULAIR(MONTELUKAST /01362601/) [Concomitant]
  13. CLARINEX [Concomitant]
  14. RITALIN [Concomitant]
  15. COGENTIN [Concomitant]
  16. ADVAIR DISKUS 100/50 [Concomitant]
  17. COMBIVENT [Concomitant]
  18. TENEX [Concomitant]
  19. BENADRYL [Concomitant]
  20. THORAZINE [Concomitant]

REACTIONS (10)
  - ABDOMINAL PAIN UPPER [None]
  - ABNORMAL BEHAVIOUR [None]
  - AGGRESSION [None]
  - CHEST PAIN [None]
  - INTENTIONAL SELF-INJURY [None]
  - IRRITABILITY [None]
  - MOOD SWINGS [None]
  - SOMNOLENCE [None]
  - SUICIDAL IDEATION [None]
  - WEIGHT INCREASED [None]
